FAERS Safety Report 22055965 (Version 1)
Quarter: 2023Q1

REPORT INFORMATION
  Report Type: Spontaneous
  Country: US (occurrence: US)
  Receive Date: 20230302
  Receipt Date: 20230302
  Transmission Date: 20230418
  Serious: Yes (Other)
  Sender: FDA-Public Use
  Company Number: US-ANIPHARMA-2022-US-008029

PATIENT
  Sex: Male

DRUGS (10)
  1. CASODEX [Suspect]
     Active Substance: BICALUTAMIDE
     Indication: Prostate cancer
     Route: 065
     Dates: start: 20170428, end: 20170531
  2. ACAPATAMAB [Suspect]
     Active Substance: ACAPATAMAB
     Route: 065
     Dates: start: 20210715, end: 20220316
  3. ELIGARD [Suspect]
     Active Substance: LEUPROLIDE ACETATE
     Route: 065
     Dates: start: 20170428
  4. RADIATION THERAPY [Suspect]
     Active Substance: RADIATION THERAPY
     Route: 065
     Dates: start: 20210324
  5. ZYTIGA [Suspect]
     Active Substance: ABIRATERONE ACETATE
     Route: 065
     Dates: start: 201806, end: 20200211
  6. PREDNISONE [Suspect]
     Active Substance: PREDNISONE
     Route: 065
     Dates: start: 20170509
  7. TAXOTERE [Suspect]
     Active Substance: DOCETAXEL
     Route: 065
     Dates: start: 20180109, end: 20180418
  8. CARBOPLATIN [Suspect]
     Active Substance: CARBOPLATIN
     Route: 065
     Dates: start: 20180204
  9. DEXAMETHASONE [Suspect]
     Active Substance: DEXAMETHASONE
     Route: 065
     Dates: start: 201806, end: 20200713
  10. ABIRATERONE [Suspect]
     Active Substance: ABIRATERONE
     Route: 065
     Dates: start: 20210324, end: 20210615

REACTIONS (1)
  - Disease progression [Not Recovered/Not Resolved]
